FAERS Safety Report 4366355-1 (Version None)
Quarter: 2004Q2

REPORT INFORMATION
  Report Type: 
  Country: None (occurrence: None)
  Receive Date: 20040527
  Receipt Date: 20031121
  Transmission Date: 20050107
  Serious: No
  Sender: FDA-Public Use
  Company Number: US-GLAXOSMITHKLINE-A0440833A

PATIENT
  Sex: Female

DRUGS (1)
  1. VENTOLIN [Suspect]
     Dosage: 1PUFF THREE TIMES PER DAY
     Route: 055

REACTIONS (2)
  - ASTHENIA [None]
  - PALPITATIONS [None]
